FAERS Safety Report 13092120 (Version 1)
Quarter: 2017Q1

REPORT INFORMATION
  Report Type: Report from Study
  Country: US (occurrence: US)
  Receive Date: 20170106
  Receipt Date: 20170106
  Transmission Date: 20170428
  Serious: Yes (Hospitalization)
  Sender: FDA-Public Use
  Company Number: US-TAIHO ONCOLOGY INC-EU-2016-03306

PATIENT
  Age: 78 Year
  Sex: Male
  Weight: 90.8 kg

DRUGS (10)
  1. SERTRALINE [Concomitant]
     Active Substance: SERTRALINE HYDROCHLORIDE
     Dosage: NI
  2. LONSURF [Suspect]
     Active Substance: TIPIRACIL HYDROCHLORIDE\TRIFLURIDINE
     Indication: COLON CANCER
  3. LASIX [Concomitant]
     Active Substance: FUROSEMIDE
     Dosage: NI
  4. GABAPENTIN. [Concomitant]
     Active Substance: GABAPENTIN
     Dosage: NI
  5. POTASSIUM [Concomitant]
     Active Substance: POTASSIUM
     Dosage: NI
  6. OMEPRAZOLE. [Concomitant]
     Active Substance: OMEPRAZOLE
     Dosage: NI
  7. MEGESTROL [Concomitant]
     Active Substance: MEGESTROL
     Dosage: NI
  8. COUMADIN [Concomitant]
     Active Substance: WARFARIN SODIUM
     Dosage: NI
  9. LONSURF [Suspect]
     Active Substance: TIPIRACIL HYDROCHLORIDE\TRIFLURIDINE
     Indication: APPENDIX CANCER
     Dosage: CYCLE 4 STARTED ON 04/DEC/2016
     Route: 048
     Dates: start: 20160903
  10. CARVEDILOL. [Concomitant]
     Active Substance: CARVEDILOL
     Dosage: NI

REACTIONS (4)
  - Fall [Recovered/Resolved]
  - Head injury [Unknown]
  - Dehydration [Recovered/Resolved]
  - Rash [Recovered/Resolved]

NARRATIVE: CASE EVENT DATE: 2016
